FAERS Safety Report 5689337-6 (Version None)
Quarter: 2008Q1

REPORT INFORMATION
  Report Type: 
  Country: None (occurrence: None)
  Receive Date: 20080331
  Receipt Date: 20080319
  Transmission Date: 20080703
  Serious: Yes (Death, Other)
  Sender: FDA-Public Use
  Company Number: ES-PFIZER INC-2008012318

PATIENT
  Age: 68 Year
  Sex: Male

DRUGS (9)
  1. NITROGLYCERIN [Suspect]
  2. DILTIAZEM [Suspect]
  3. METFORMIN HCL [Suspect]
     Indication: DIABETES MELLITUS
     Dosage: DAILY DOSE:850MG
  4. ACETYLSALICYLATE LYSINE [Suspect]
  5. GLYBURIDE [Suspect]
  6. RAMIPRIL [Suspect]
  7. CLOPIDOGREL [Suspect]
  8. TORSEMIDE [Suspect]
  9. TRIMETAZIDINE [Suspect]

REACTIONS (3)
  - DRUG TOXICITY [None]
  - METABOLIC ACIDOSIS [None]
  - RENAL FAILURE [None]
